FAERS Safety Report 6759163-5 (Version None)
Quarter: 2010Q2

REPORT INFORMATION
  Report Type: 
  Country: None (occurrence: None)
  Receive Date: 20100607
  Receipt Date: 20100601
  Transmission Date: 20101027
  Serious: Yes (Death, Hospitalization)
  Sender: FDA-Public Use
  Company Number: US-MEDIMMUNE-MEDI-0011206

PATIENT
  Sex: Female
  Weight: 4.858 kg

DRUGS (7)
  1. SYNAGIS [Suspect]
     Route: 030
     Dates: start: 20091103, end: 20091207
  2. PREVACID [Concomitant]
  3. PHENOBARBITAL [Concomitant]
  4. DIURIL [Concomitant]
  5. KEPPRA [Concomitant]
  6. POLY-VI-SOL [Concomitant]
  7. PEPCID [Concomitant]

REACTIONS (3)
  - BLOOD SODIUM DECREASED [None]
  - CONVULSION [None]
  - RESPIRATORY FAILURE [None]
